FAERS Safety Report 9034501 (Version 1)
Quarter: 2013Q1

REPORT INFORMATION
  Report Type: Spontaneous
  Country: US (occurrence: None)
  Receive Date: 20130115
  Receipt Date: 20130115
  Transmission Date: 20140127
  Serious: Yes (Other)
  Sender: FDA-Public Use
  Company Number: JPI-P-028804

PATIENT
  Age: 42 Year
  Sex: Male
  Weight: 104.33 kg

DRUGS (2)
  1. XYREM (500 MILLIGRAM/MILLILITERS, SOLUTION) (SODIUM OXYBATE) [Suspect]
     Indication: SOMNOLENCE
     Dosage: 4.5 GM (2.25 GM, 2 IN 1 D), ORAL
     Route: 048
     Dates: start: 20090528
  2. XYREM (500 MILLIGRAM/MILLILITERS, SOLUTION) (SODIUM OXYBATE) [Suspect]
     Route: 048

REACTIONS (9)
  - Intervertebral disc disorder [None]
  - Neck pain [None]
  - Procedural pain [None]
  - Weight increased [None]
  - Fall [None]
  - Contusion [None]
  - Scratch [None]
  - Head injury [None]
  - Limb injury [None]
